FAERS Safety Report 5844443-8 (Version None)
Quarter: 2008Q3

REPORT INFORMATION
  Report Type: 
  Country: None (occurrence: None)
  Receive Date: 20080813
  Receipt Date: 20080806
  Transmission Date: 20090109
  Serious: Yes (Other)
  Sender: FDA-Public Use
  Company Number: US-AMGEN-QUU299816

PATIENT
  Sex: Female

DRUGS (2)
  1. ENBREL [Suspect]
     Indication: RHEUMATOID ARTHRITIS
     Route: 058
     Dates: start: 20080222
  2. ARAVA [Concomitant]
     Route: 048

REACTIONS (4)
  - DIABETES MELLITUS [None]
  - HEADACHE [None]
  - NAUSEA [None]
  - TREMOR [None]
